FAERS Safety Report 4281377-7 (Version None)
Quarter: 2004Q1

REPORT INFORMATION
  Report Type: 
  Country: None (occurrence: None)
  Receive Date: 20040108
  Receipt Date: 20030204
  Transmission Date: 20041129
  Serious: Yes (Other)
  Sender: FDA-Public Use
  Company Number: HQWYE308910FEB03

PATIENT
  Sex: Female

DRUGS (2)
  1. PREMPRO [Suspect]
     Dosage: 0.625MG/UNSPECIFIED, ORAL
     Route: 048
  2. PREMARIN [Suspect]
     Dosage: ORAL
     Route: 048
     Dates: start: 19820101

REACTIONS (17)
  - ABDOMINAL PAIN [None]
  - ALOPECIA [None]
  - BREAST CANCER FEMALE [None]
  - BREAST TENDERNESS [None]
  - DEPRESSION [None]
  - DIABETES MELLITUS [None]
  - DIZZINESS [None]
  - GALLBLADDER DISORDER [None]
  - GLUCOSE TOLERANCE DECREASED [None]
  - HYPERTROPHY BREAST [None]
  - METRORRHAGIA [None]
  - MIGRAINE [None]
  - MUSCLE SPASMS [None]
  - NAUSEA [None]
  - VAGINAL CANDIDIASIS [None]
  - VOMITING [None]
  - WEIGHT INCREASED [None]
